FAERS Safety Report 5255748-6 (Version None)
Quarter: 2007Q1

REPORT INFORMATION
  Report Type: 
  Country: None (occurrence: None)
  Receive Date: 20070305
  Receipt Date: 20070222
  Transmission Date: 20070707
  Serious: Yes (Other)
  Sender: FDA-Public Use
  Company Number: US-PFIZER INC-2007014757

PATIENT
  Sex: Male
  Weight: 99.8 kg

DRUGS (6)
  1. LYRICA [Suspect]
     Indication: PAIN
  2. BACLOFEN [Concomitant]
  3. NAPROXEN [Concomitant]
  4. FLOMAX [Concomitant]
  5. DIURETICS [Concomitant]
  6. OYSTER SHELL [Concomitant]

REACTIONS (6)
  - CONSTIPATION [None]
  - ERYTHEMA [None]
  - HAEMORRHOIDAL HAEMORRHAGE [None]
  - MUSCULOSKELETAL STIFFNESS [None]
  - OEDEMA PERIPHERAL [None]
  - WEIGHT INCREASED [None]
